FAERS Safety Report 10161294 (Version 1)
Quarter: 2014Q2

REPORT INFORMATION
  Report Type: Spontaneous
  Country: US (occurrence: US)
  Receive Date: 20140508
  Receipt Date: 20140508
  Transmission Date: 20141212
  Serious: No
  Sender: FDA-Public Use
  Company Number: US-009507513-2012SP023393

PATIENT
  Age: 3 Year
  Sex: Male
  Weight: 24.95 kg

DRUGS (2)
  1. CLARITIN [Suspect]
     Indication: SEASONAL ALLERGY
     Dosage: 10 MG, ONCE
     Route: 048
     Dates: start: 2012
  2. CLARITIN [Concomitant]
     Indication: SEASONAL ALLERGY
     Dosage: 5 MG, QD
     Dates: start: 2012

REACTIONS (2)
  - Accidental exposure to product by child [Unknown]
  - Overdose [Unknown]
